FAERS Safety Report 5241976-2 (Version None)
Quarter: 2007Q1

REPORT INFORMATION
  Report Type: 
  Country: None (occurrence: None)
  Receive Date: 20070220
  Receipt Date: 20070208
  Transmission Date: 20070707
  Serious: Yes (Other)
  Sender: FDA-Public Use
  Company Number: US-PFIZER INC-2007011165

PATIENT
  Sex: Female

DRUGS (2)
  1. DETROL LA [Suspect]
  2. ALL OTHER THERAPEUTIC PRODUCTS [Concomitant]

REACTIONS (2)
  - ABNORMAL CLOTTING FACTOR [None]
  - COAGULATION FACTOR VIII LEVEL INCREASED [None]
